FAERS Safety Report 4560386-4 (Version None)
Quarter: 2005Q1

REPORT INFORMATION
  Report Type: 
  Country: None (occurrence: None)
  Receive Date: 20050125
  Receipt Date: 20041014
  Transmission Date: 20050727
  Serious: Yes (Hospitalization)
  Sender: FDA-Public Use
  Company Number: ES-ROCHE-383143

PATIENT
  Age: 51 Year
  Sex: Male
  Weight: 85 kg

DRUGS (11)
  1. DACLIZUMAB [Suspect]
     Route: 042
     Dates: start: 20040921, end: 20041117
  2. MYCOPHENOLATE MOFETIL [Suspect]
     Dosage: NO UNITS PROVIDED
     Route: 048
     Dates: start: 20040921
  3. CYCLOSPORINE [Suspect]
     Route: 048
     Dates: start: 20040921, end: 20041013
  4. CYCLOSPORINE [Suspect]
     Route: 048
     Dates: start: 20041014
  5. PREDNISONE [Suspect]
     Route: 048
     Dates: start: 20040922, end: 20041012
  6. PREDNISONE [Suspect]
     Route: 048
     Dates: start: 20041013
  7. PREDNISONE [Suspect]
     Route: 048
     Dates: start: 20041128
  8. FUROSEMIDE [Concomitant]
     Route: 048
     Dates: start: 20040924
  9. RANUBER [Concomitant]
     Route: 048
     Dates: start: 20040923
  10. AUGMENTIN [Concomitant]
     Route: 048
     Dates: start: 20041019
  11. AMLODIPINO [Concomitant]
     Route: 048
     Dates: start: 20041102

REACTIONS (10)
  - COMPLICATIONS OF TRANSPLANTED KIDNEY [None]
  - CONGENITAL CYSTIC KIDNEY DISEASE [None]
  - CYTOMEGALOVIRUS INFECTION [None]
  - ESCHERICHIA INFECTION [None]
  - HAEMODIALYSIS [None]
  - NEPHROLITHIASIS [None]
  - PERIRENAL HAEMATOMA [None]
  - PSEUDOMONAS INFECTION [None]
  - RENAL ARTERY OCCLUSION [None]
  - URINARY TRACT INFECTION [None]
